FAERS Safety Report 8835245 (Version 3)
Quarter: 2012Q4

REPORT INFORMATION
  Report Type: 
  Country: US (occurrence: US)
  Receive Date: 20121011
  Receipt Date: 20121226
  Transmission Date: 20130627
  Serious: Yes (Other)
  Sender: FDA-Public Use
  Company Number: US-PFIZER INC-2012251587

PATIENT
  Age: 51 Year
  Sex: Female
  Weight: 63.5 kg

DRUGS (3)
  1. EFFEXOR XR [Suspect]
     Indication: DEPRESSION
     Dosage: 37.5 mg, 1x/day
     Route: 048
  2. EFFEXOR XR [Suspect]
     Dosage: UNK
     Route: 048
     Dates: end: 201209
  3. LEXAPRO [Concomitant]
     Dosage: UNK

REACTIONS (4)
  - Cervix carcinoma [Unknown]
  - Cervical dysplasia [Unknown]
  - Hot flush [Unknown]
  - Drug ineffective [Unknown]
